FAERS Safety Report 9087474 (Version 2)
Quarter: 2014Q3

REPORT INFORMATION
  Report Type: Report from Study
  Country: GB (occurrence: GB)
  Receive Date: 20130201
  Receipt Date: 20140926
  Transmission Date: 20150326
  Serious: Yes (Other)
  Sender: FDA-Public Use
  Company Number: GB-BRISTOL-MYERS SQUIBB COMPANY-17161811

PATIENT
  Age: 16 Year
  Sex: Male

DRUGS (1)
  1. IPILIMUMAB [Suspect]
     Active Substance: IPILIMUMAB
     Indication: METASTATIC MALIGNANT MELANOMA
     Dates: start: 201006, end: 201010

REACTIONS (1)
  - Radiation myelopathy [Not Recovered/Not Resolved]

NARRATIVE: CASE EVENT DATE: 20121030
